FAERS Safety Report 25417173 (Version 1)
Quarter: 2025Q2

REPORT INFORMATION
  Report Type: Spontaneous
  Country: AU (occurrence: AU)
  Receive Date: 20250610
  Receipt Date: 20250610
  Transmission Date: 20250716
  Serious: Yes (Other)
  Sender: UCB
  Company Number: AU-UCBSA-2025032691

PATIENT
  Sex: Female

DRUGS (3)
  1. BIMEKIZUMAB [Suspect]
     Active Substance: BIMEKIZUMAB
     Indication: Hidradenitis
  2. INFLIXIMAB [Concomitant]
     Active Substance: INFLIXIMAB
     Indication: Pyoderma gangrenosum
  3. INFLIXIMAB [Concomitant]
     Active Substance: INFLIXIMAB

REACTIONS (2)
  - Pyoderma gangrenosum [Unknown]
  - Condition aggravated [Unknown]
